FAERS Safety Report 8460209-7 (Version None)
Quarter: 2012Q2

REPORT INFORMATION
  Report Type: 
  Country: None (occurrence: None)
  Receive Date: 20120323
  Receipt Date: 20111010
  Transmission Date: 20120825
  Serious: Yes (Other)
  Sender: FDA-Public Use
  Company Number: 163-21880-11092525

PATIENT
  Age: 83 Year
  Sex: Female

DRUGS (3)
  1. REVLIMID [Suspect]
  2. REVLIMID [Suspect]
     Indication: MYELODYSPLASTIC SYNDROME
     Dosage: 10 MG, DAILY FOR 28 DAYS, PO, 5 MG, DAILY FOR 28 DAYS, PO
     Route: 048
     Dates: start: 20110901, end: 20110101
  3. REVLIMID [Suspect]
     Indication: MYELODYSPLASTIC SYNDROME
     Dosage: 10 MG, DAILY FOR 28 DAYS, PO, 5 MG, DAILY FOR 28 DAYS, PO
     Route: 048
     Dates: start: 20110901, end: 20110915

REACTIONS (4)
  - OEDEMA PERIPHERAL [None]
  - FULL BLOOD COUNT DECREASED [None]
  - FATIGUE [None]
  - MUSCLE SPASMS [None]
